FAERS Safety Report 12217617 (Version 1)
Quarter: 2016Q1

REPORT INFORMATION
  Report Type: Spontaneous
  Country: US (occurrence: None)
  Receive Date: 20160328
  Receipt Date: 20160328
  Transmission Date: 20160526
  Serious: Yes (Life-Threatening, Disabling)
  Sender: FDA-Public Use
  Company Number: None

PATIENT
  Sex: Male
  Weight: 77.11 kg

DRUGS (10)
  1. CHANTIX [Suspect]
     Active Substance: VARENICLINE TARTRATE
     Indication: SMOKING CESSATION THERAPY
     Route: 048
     Dates: start: 20080205, end: 20080418
  2. EXCEDRIN [Concomitant]
     Active Substance: ACETAMINOPHEN\ASPIRIN\CAFFEINE
  3. ZOLPIDEM/AMBIEN [Concomitant]
  4. TYLENOL [Concomitant]
     Active Substance: ACETAMINOPHEN
  5. IMITREX/ZOMIG [Concomitant]
  6. PEPTO-BISMOL [Concomitant]
     Active Substance: BISMUTH SUBSALICYLATE\CALCIUM CARBONATE
  7. ADVIL [Concomitant]
     Active Substance: IBUPROFEN
  8. XANAX [Concomitant]
     Active Substance: ALPRAZOLAM
  9. PROPECIA [Concomitant]
     Active Substance: FINASTERIDE
  10. COLD MEDICINE [Concomitant]
     Active Substance: UNSPECIFIED INGREDIENT

REACTIONS (6)
  - Suicidal ideation [None]
  - Major depression [None]
  - Impaired work ability [None]
  - Dysgraphia [None]
  - Fear of death [None]
  - Anxiety [None]
